FAERS Safety Report 7851805-6 (Version None)
Quarter: 2011Q4

REPORT INFORMATION
  Report Type: 
  Country: None (occurrence: None)
  Receive Date: 20111026
  Receipt Date: 20110920
  Transmission Date: 20120403
  Serious: No
  Sender: FDA-Public Use
  Company Number: US-BAYER-2011-090673

PATIENT
  Age: 43 Year
  Sex: Female
  Weight: 96 kg

DRUGS (7)
  1. ALEVE (CAPLET) [Suspect]
  2. ALEVE (CAPLET) [Suspect]
     Indication: ARTHRALGIA
     Dosage: COUNT SIZE 6S
     Dates: start: 20110920
  3. PREVACID [Concomitant]
  4. NORVASC [Concomitant]
  5. ALEVE (CAPLET) [Suspect]
     Indication: MUSCULOSKELETAL PAIN
  6. ALEVE (CAPLET) [Suspect]
  7. ALBUTEROL [Concomitant]
     Dosage: UNK UNK, PRN

REACTIONS (3)
  - SOMNOLENCE [None]
  - DIZZINESS [None]
  - FEELING ABNORMAL [None]
